FAERS Safety Report 10135158 (Version 3)
Quarter: 2014Q2

REPORT INFORMATION
  Report Type: Spontaneous
  Country: JP (occurrence: JP)
  Receive Date: 20140428
  Receipt Date: 20140528
  Transmission Date: 20141212
  Serious: Yes (Hospitalization)
  Sender: FDA-Public Use
  Company Number: JP-009507513-1404JPN013288

PATIENT
  Age: 78 Year
  Sex: Male

DRUGS (5)
  1. MK-0000 [Suspect]
  2. LENADEX [Suspect]
     Indication: PLASMA CELL MYELOMA
     Dosage: DAILY DOSAGE UNKNOWN
     Route: 048
  3. LENADEX [Suspect]
     Dosage: DAILY DOSAGE UNKNOWN
     Route: 048
  4. LENALIDOMIDE [Suspect]
     Indication: PLASMA CELL MYELOMA
     Dosage: DAILY DOSAGE UNKNOWN
     Route: 048
  5. LENALIDOMIDE [Suspect]
     Dosage: DAILY DOSAGE UNKNOWN

REACTIONS (4)
  - Neuropathy peripheral [Recovering/Resolving]
  - Gait disturbance [Recovering/Resolving]
  - Platelet count decreased [Unknown]
  - General physical health deterioration [Unknown]
